FAERS Safety Report 7166803-8 (Version None)
Quarter: 2010Q4

REPORT INFORMATION
  Report Type: 
  Country: None (occurrence: None)
  Receive Date: 20101213
  Receipt Date: 20101213
  Transmission Date: 20110411
  Serious: Yes (Other)
  Sender: FDA-Public Use
  Company Number: None

PATIENT
  Sex: Female
  Weight: 42.6381 kg

DRUGS (1)
  1. ROLAIDS [Suspect]
     Indication: DYSPEPSIA
     Dosage: 2 A DAY

REACTIONS (5)
  - CONDITION AGGRAVATED [None]
  - GASTROOESOPHAGEAL REFLUX DISEASE [None]
  - IRON DEFICIENCY ANAEMIA [None]
  - PRODUCT QUALITY ISSUE [None]
  - VOMITING [None]
